FAERS Safety Report 4694265-9 (Version None)
Quarter: 2005Q2

REPORT INFORMATION
  Report Type: 
  Country: None (occurrence: None)
  Receive Date: 20050620
  Receipt Date: 20050615
  Transmission Date: 20051028
  Serious: Yes (Life-Threatening)
  Sender: FDA-Public Use
  Company Number: JP-BOEHRINGER INGELHEIM PHARMACEUTICALS, INC.-2005-BP-10204YA

PATIENT
  Age: 67 Year
  Sex: Male

DRUGS (10)
  1. HARNAL [Suspect]
     Route: 048
  2. CEFZON [Suspect]
     Route: 048
     Dates: start: 20050603
  3. HI-PEN [Suspect]
     Route: 048
  4. CERNILTON [Suspect]
     Route: 048
  5. NISOLDIPINE [Concomitant]
     Route: 048
  6. ISOSORBIDE MONONITRATE [Concomitant]
     Route: 048
  7. PREDNISOLONE [Concomitant]
     Route: 048
  8. FAMOTIDINE [Concomitant]
     Route: 048
  9. PRAVASTATIN SODIUM [Concomitant]
     Route: 048
  10. TAMOXIFEN CITRATE [Concomitant]
     Route: 048

REACTIONS (1)
  - AGRANULOCYTOSIS [None]
